FAERS Safety Report 18352576 (Version 1)
Quarter: 2020Q4

REPORT INFORMATION
  Report Type: Spontaneous
  Country: US (occurrence: US)
  Receive Date: 20201006
  Receipt Date: 20201006
  Transmission Date: 20210114
  Serious: No
  Sender: FDA-Public Use
  Company Number: US-ALLERGAN-2010724US

PATIENT
  Sex: Female

DRUGS (2)
  1. LINZESS [Suspect]
     Active Substance: LINACLOTIDE
     Dosage: 290 MG
     Route: 065
  2. LINZESS [Suspect]
     Active Substance: LINACLOTIDE
     Indication: PRODUCT USED FOR UNKNOWN INDICATION
     Dosage: 72 MG
     Route: 065

REACTIONS (3)
  - Drug ineffective [Unknown]
  - Product prescribing error [Unknown]
  - Diarrhoea [Not Recovered/Not Resolved]
